FAERS Safety Report 4689663-3 (Version None)
Quarter: 2005Q2

REPORT INFORMATION
  Report Type: 
  Country: None (occurrence: None)
  Receive Date: 20050608
  Receipt Date: 20050314
  Transmission Date: 20051028
  Serious: No
  Sender: FDA-Public Use
  Company Number: 2005-BP-04250BP

PATIENT
  Age: 82 Year
  Sex: Male

DRUGS (11)
  1. SPIRIVA [Suspect]
     Indication: CHRONIC OBSTRUCTIVE PULMONARY DISEASE
     Dosage: 18 MCG (18 MCG, QD), IH
     Route: 055
     Dates: start: 20050301, end: 20050311
  2. SPIRIVA [Suspect]
     Indication: PNEUMONIA
     Dosage: 18 MCG (18 MCG, QD), IH
     Route: 055
     Dates: start: 20050301, end: 20050311
  3. SPIRIVA [Suspect]
  4. ACETYLSALICYLIC ACID SRT [Concomitant]
  5. LISINOPRIL [Concomitant]
  6. HYDROCHLOROTHIAZIDE [Concomitant]
  7. PLAVIX [Concomitant]
  8. DILTIAZEM [Concomitant]
  9. ISORBIDE (ISOSORBIDE DINITRATE0 [Concomitant]
  10. LOVASTATIN [Concomitant]
  11. METOPROLOL [Concomitant]

REACTIONS (1)
  - DRY MOUTH [None]
